FAERS Safety Report 4941514-5 (Version None)
Quarter: 2006Q1

REPORT INFORMATION
  Report Type: 
  Country: None (occurrence: None)
  Receive Date: 20060313
  Receipt Date: 20050829
  Transmission Date: 20060701
  Serious: Yes (Hospitalization, Other)
  Sender: FDA-Public Use
  Company Number: US-MERCK-0508USA04784

PATIENT
  Age: 44 Year
  Sex: Male
  Weight: 81 kg

DRUGS (10)
  1. VIOXX [Suspect]
     Indication: PAIN
     Route: 048
     Dates: start: 20040401, end: 20040601
  2. VIOXX [Suspect]
     Indication: PHLEBITIS
     Route: 048
     Dates: start: 20040401, end: 20040601
  3. TYLENOL (CAPLET) [Concomitant]
     Route: 065
  4. IBUPROFEN [Concomitant]
     Route: 065
  5. INDERAL [Concomitant]
     Route: 065
  6. MIRAPEX [Concomitant]
     Route: 065
  7. REMERON [Concomitant]
     Route: 065
  8. VALIUM [Concomitant]
     Route: 065
  9. FLEXERIL [Concomitant]
     Route: 048
  10. DILANTIN [Concomitant]
     Route: 065

REACTIONS (49)
  - ABDOMINAL ADHESIONS [None]
  - ABDOMINAL PAIN [None]
  - ATELECTASIS [None]
  - BLOOD AMYLASE INCREASED [None]
  - BLOOD DISORDER [None]
  - BLOOD PRESSURE DECREASED [None]
  - CEREBROVASCULAR ACCIDENT [None]
  - CHEST PAIN [None]
  - COAGULATION TEST ABNORMAL [None]
  - COUGH [None]
  - DEEP VEIN THROMBOSIS [None]
  - DEHYDRATION [None]
  - DYSPNOEA [None]
  - ELECTROCARDIOGRAM ABNORMAL [None]
  - GASTROENTERITIS VIRAL [None]
  - HEADACHE [None]
  - HEPATIC ENZYME INCREASED [None]
  - HEPATIC STEATOSIS [None]
  - HEPATOMEGALY [None]
  - HYPOTHYROIDISM [None]
  - HYPOXIA [None]
  - INCONTINENCE [None]
  - LIVER DISORDER [None]
  - LIVER FUNCTION TEST ABNORMAL [None]
  - MALAISE [None]
  - MEMORY IMPAIRMENT [None]
  - MENINGITIS ASEPTIC [None]
  - MICTURITION URGENCY [None]
  - MIGRAINE WITH AURA [None]
  - MUSCLE HAEMORRHAGE [None]
  - MUSCLE SPASMS [None]
  - MUSCULAR WEAKNESS [None]
  - MYALGIA [None]
  - OEDEMA PERIPHERAL [None]
  - ORTHOSTATIC HYPOTENSION [None]
  - PAIN [None]
  - PAIN IN EXTREMITY [None]
  - PERIPHERAL COLDNESS [None]
  - PNEUMONIA [None]
  - PORPHYRIA [None]
  - PORPHYRIA ACUTE [None]
  - PORPHYRINS URINE ABNORMAL [None]
  - POST THROMBOTIC SYNDROME [None]
  - PULMONARY EMBOLISM [None]
  - SYNCOPE [None]
  - THROMBOSIS [None]
  - TRANSIENT ISCHAEMIC ATTACK [None]
  - TREMOR [None]
  - VOMITING [None]
